FAERS Safety Report 9656136 (Version 2)
Quarter: 2013Q4

REPORT INFORMATION
  Report Type: Spontaneous
  Country: NZ (occurrence: NZ)
  Receive Date: 20131030
  Receipt Date: 20131030
  Transmission Date: 20140711
  Serious: Yes (Other)
  Sender: FDA-Public Use
  Company Number: PHHY2013NZ098307

PATIENT
  Age: 81 Year
  Sex: Male
  Weight: 67 kg

DRUGS (26)
  1. ACLASTA [Suspect]
     Indication: OSTEOPOROSIS
     Dosage: 5 MG/100ML
     Route: 042
     Dates: start: 20130710
  2. AMITRIP [Concomitant]
     Indication: PAIN
     Dosage: 3 DF, AT NIGHT
     Dates: start: 20130911
  3. AMITRIP [Concomitant]
     Indication: AFFECTIVE DISORDER
  4. AMITRIP [Concomitant]
     Indication: SLEEP DISORDER
  5. PREDNISONE [Concomitant]
     Indication: ARTHRITIS
     Dosage: 50 MG, 2 QD
     Dates: start: 20130911
  6. PREDNISONE [Concomitant]
     Dosage: 1 MG, 4 QD
     Dates: start: 20130911
  7. PREDNISONE [Concomitant]
     Dosage: 180 AS DIRECTED
  8. PREDNISONE [Concomitant]
     Dosage: 120 AS DIRECTED
  9. PREDNISONE [Concomitant]
     Dosage: 5 MG,1 TABLET QD
     Dates: start: 20130612
  10. SEBIZOLE [Concomitant]
     Indication: HAIR DISORDER
     Dosage: 1 DF, EACH WEEK AS NEEDED.
     Dates: start: 20130911
  11. CHOLECALCIFEROL [Concomitant]
     Indication: VITAMIN D ABNORMAL
     Dosage: 2 DF, (50,000IU), ONCE DAILY ONCE AMONTH
     Dates: start: 20130911
  12. ENALAPRIL MALEATE [Concomitant]
     Indication: BLOOD PRESSURE ABNORMAL
     Dosage: 1 DF, UNK
     Dates: start: 20130911
  13. ENALAPRIL MALEATE [Concomitant]
     Indication: RENAL DISORDER
  14. BENDROFLUAZIDE [Concomitant]
     Indication: BLOOD PRESSURE ABNORMAL
     Dosage: 1 DF, UNK
     Dates: start: 20130911
  15. LORAZEPAM [Concomitant]
     Dosage: 3 DF, QD
     Dates: start: 20130911
  16. ASPIRIN [Concomitant]
     Dosage: 1 DF, UNK
     Dates: start: 20130911
  17. ATORVASTATIN [Concomitant]
     Indication: BLOOD CHOLESTEROL INCREASED
     Dosage: 1 DF, UNK
     Dates: start: 20130911
  18. OMEPRAZOLE [Concomitant]
     Dosage: 1 DF, QD
     Dates: start: 20130911
  19. FELODIPINE [Concomitant]
     Indication: BLOOD PRESSURE ABNORMAL
     Dosage: 1 DF, UNK
     Dates: start: 20130911
  20. SERETIDE [Concomitant]
     Indication: ASTHMA
     Dosage: 2 DF, BID
     Dates: start: 20130911
  21. ATROVENT [Concomitant]
     Indication: ASTHMA
     Dosage: 1 DF, FOUR TIMES DAILY, 200 DOSES
     Dates: start: 20130911
  22. MYLANTA                                 /AUS/ [Concomitant]
     Indication: DYSPEPSIA
     Dosage: 20 ML,  AS REQUIRED
     Dates: start: 20120618
  23. AQUEOUS BP [Concomitant]
     Indication: DRY SKIN PROPHYLAXIS
     Dosage: UNK UKN, BID
     Dates: start: 20120314
  24. NUTRAPLUS [Concomitant]
     Indication: DRY SKIN PROPHYLAXIS
     Dosage: 100 G, AS REQUIRED
     Dates: start: 20110316
  25. IMMUNOSUPPRESSANTS [Concomitant]
  26. DIURETICS [Concomitant]

REACTIONS (16)
  - Pyrexia [Unknown]
  - Chills [Unknown]
  - Muscle injury [Unknown]
  - Arthralgia [Unknown]
  - Myalgia [Unknown]
  - Asthenia [Unknown]
  - Blood pressure increased [Unknown]
  - Urinary tract infection [Unknown]
  - C-reactive protein increased [Unknown]
  - Urine output increased [Unknown]
  - Micturition urgency [Unknown]
  - Glomerular filtration rate decreased [Unknown]
  - Dysuria [Unknown]
  - Fall [Unknown]
  - Viral infection [Unknown]
  - Pain [Unknown]
